FAERS Safety Report 12126850 (Version 1)
Quarter: 2016Q1

REPORT INFORMATION
  Report Type: Spontaneous
  Country: CN (occurrence: CN)
  Receive Date: 20160229
  Receipt Date: 20160229
  Transmission Date: 20160526
  Serious: Yes (Other)
  Sender: FDA-Public Use
  Company Number: CN-JNJFOC-20160223343

PATIENT
  Age: 31 Year
  Sex: Female
  Weight: 70 kg

DRUGS (2)
  1. RISPERDAL [Suspect]
     Active Substance: RISPERIDONE
     Indication: DEPRESSION
     Dosage: PATIENT TREATED WITH RISPERIDONE IN THE SECOND HALF OF 2013.
     Route: 048
     Dates: start: 2013, end: 2013
  2. RISPERDAL [Suspect]
     Active Substance: RISPERIDONE
     Indication: DEPRESSION
     Route: 048

REACTIONS (10)
  - Off label use [Unknown]
  - Hallucination [Unknown]
  - Dizziness [Unknown]
  - Intentional overdose [Unknown]
  - Cognitive disorder [Unknown]
  - Intentional self-injury [Unknown]
  - Product use issue [Unknown]
  - Incoherent [Unknown]
  - Aggression [Unknown]
  - Antisocial behaviour [Unknown]
